FAERS Safety Report 15485178 (Version 1)
Quarter: 2018Q4

REPORT INFORMATION
  Report Type: Spontaneous
  Country: US (occurrence: US)
  Receive Date: 20181010
  Receipt Date: 20181010
  Transmission Date: 20190205
  Serious: Yes (Hospitalization, Other)
  Sender: FDA-Public Use
  Company Number: US-ACTELION-A-NJ2018-178545

PATIENT
  Age: 66 Year
  Sex: Female
  Weight: 95.24 kg

DRUGS (5)
  1. WARFARIN [Concomitant]
     Active Substance: WARFARIN
  2. UPTRAVI [Suspect]
     Active Substance: SELEXIPAG
     Indication: PULMONARY ARTERIAL HYPERTENSION
     Dosage: 200 MCG, BID
     Route: 048
     Dates: start: 20180803
  3. UPTRAVI [Suspect]
     Active Substance: SELEXIPAG
     Dosage: 400 MCG, BID
     Route: 048
  4. TYVASO [Suspect]
     Active Substance: TREPROSTINIL
     Indication: PULMONARY ARTERIAL HYPERTENSION
     Dosage: 18-54 MCG, 3-9 BREATHS, QID
     Route: 055
     Dates: start: 20120919, end: 20180817
  5. UPTRAVI [Suspect]
     Active Substance: SELEXIPAG
     Dosage: 1600 MCG, BID
     Route: 048

REACTIONS (8)
  - Diarrhoea [Unknown]
  - Headache [Unknown]
  - Myalgia [Unknown]
  - Transfusion [Unknown]
  - Haemorrhage [Unknown]
  - Eye pain [Unknown]
  - Insomnia [Unknown]
  - Mental impairment [Unknown]

NARRATIVE: CASE EVENT DATE: 201808
